FAERS Safety Report 9056964 (Version 1)
Quarter: 2013Q1

REPORT INFORMATION
  Report Type: Spontaneous
  Country: CH (occurrence: CH)
  Receive Date: 20130131
  Receipt Date: 20130131
  Transmission Date: 20140127
  Serious: Yes (Congenital Anomaly)
  Sender: FDA-Public Use
  Company Number: CH-UCBSA-076832

PATIENT
  Age: 0 None
  Sex: Male
  Weight: 2.7 kg

DRUGS (6)
  1. CIMZIA [Suspect]
     Indication: RHEUMATOID ARTHRITIS
     Route: 064
     Dates: start: 20120724, end: 20121113
  2. FOLIC ACID [Concomitant]
     Dosage: TOTAL DAILY DOSE:5 MG
     Route: 064
     Dates: start: 2012
  3. PREDNISONE [Concomitant]
     Indication: RHEUMATOID ARTHRITIS
     Dosage: TOTAL DAILY DOSE:10 MG
     Route: 064
     Dates: start: 2012
  4. PLAQUENIL [Concomitant]
     Indication: RHEUMATOID ARTHRITIS
     Dosage: TOTAL DAILY DOSE: 100 MG/DAY
     Route: 064
     Dates: start: 2012
  5. SALAZOPYRIN [Concomitant]
     Indication: RHEUMATOID ARTHRITIS
     Dosage: TOTAL DAILY DOSE:2 G
     Route: 064
     Dates: start: 2012
  6. IBUPROFEN [Concomitant]
     Indication: RHEUMATOID ARTHRITIS
     Dosage: TOTAL DAILY DOSE: 1600 MG
     Route: 064
     Dates: start: 2012, end: 20120925

REACTIONS (3)
  - Congenital megacolon [Unknown]
  - Talipes [Unknown]
  - Foetal exposure during pregnancy [Recovered/Resolved]
